FAERS Safety Report 9222034 (Version 1)
Quarter: 2013Q2

REPORT INFORMATION
  Report Type: Spontaneous
  Country: US (occurrence: None)
  Receive Date: 20130408
  Receipt Date: 20130408
  Transmission Date: 20140414
  Serious: Yes (Other)
  Sender: FDA-Public Use
  Company Number: 2013AP004036

PATIENT
  Age: 53 Year
  Sex: Male

DRUGS (7)
  1. GABAPENTIN CAPSULES (GABAPENTIN) [Suspect]
     Indication: CENTRAL PAIN SYNDROME
  2. PREGABALIN [Suspect]
     Indication: CENTRAL PAIN SYNDROME
  3. AMITRIPTYLINE [Suspect]
     Indication: CENTRAL PAIN SYNDROME
  4. NORTRIPTYLINE [Suspect]
     Indication: CENTRAL PAIN SYNDROME
  5. MORPHINE [Suspect]
     Indication: CENTRAL PAIN SYNDROME
     Route: 048
  6. HYDROCODONE [Suspect]
     Indication: CENTRAL PAIN SYNDROME
  7. PARACETAMOL [Suspect]
     Indication: CENTRAL PAIN SYNDROME
     Route: 048

REACTIONS (3)
  - Sedation [None]
  - Somnolence [None]
  - Cognitive disorder [None]
